FAERS Safety Report 16915358 (Version 1)
Quarter: 2019Q4

REPORT INFORMATION
  Report Type: Report from Study
  Country: IT (occurrence: IT)
  Receive Date: 20191014
  Receipt Date: 20191014
  Transmission Date: 20200122
  Serious: Yes (Death, Hospitalization)
  Sender: FDA-Public Use
  Company Number: IT-CELGENEUS-ITA-20170800738

PATIENT

DRUGS (3)
  1. ANIDULAFUNGINA [Concomitant]
     Active Substance: ANIDULAFUNGIN
     Indication: ORAL CANDIDIASIS
     Dosage: 100 MILLIGRAM
     Route: 065
     Dates: start: 20170809, end: 20170817
  2. REVLIMID [Suspect]
     Active Substance: LENALIDOMIDE
     Indication: LYMPHOMA
     Dosage: 500MG
     Route: 048
     Dates: start: 20170509, end: 20170515
  3. CLARITHROMYCIN. [Suspect]
     Active Substance: CLARITHROMYCIN
     Indication: LYMPHOMA
     Route: 048
     Dates: start: 20170509, end: 20170515

REACTIONS (2)
  - Disease progression [Fatal]
  - Pneumonia [Recovered/Resolved]

NARRATIVE: CASE EVENT DATE: 20170711
